FAERS Safety Report 5856773-4 (Version None)
Quarter: 2008Q3

REPORT INFORMATION
  Report Type: 
  Country: None (occurrence: None)
  Receive Date: 20080821
  Receipt Date: 20080807
  Transmission Date: 20090109
  Serious: Yes (Death)
  Sender: FDA-Public Use
  Company Number: SPV1-2008-01673

PATIENT
  Sex: 0

DRUGS (16)
  1. AGRYLIN [Suspect]
     Indication: THROMBOCYTHAEMIA
     Dosage: 0.5 MG, 3X/DAY:TID; 0.5 MG, 3X/DAY:TID
  2. AGRYLIN [Suspect]
     Indication: THROMBOCYTHAEMIA
     Dosage: 0.5 MG, 3X/DAY:TID; 0.5 MG, 3X/DAY:TID
     Dates: start: 20050101
  3. HYDROXYUREA [Concomitant]
  4. DALTEPARIN (DALTEPARIN) UNKNOWN [Concomitant]
  5. CLOPIDOGREL [Concomitant]
  6. ACETYLSALICYLIC ACID SRT [Concomitant]
  7. RAMIPRIL [Concomitant]
  8. METOPROLOL (METOPROLOL) UNKNOWN [Concomitant]
  9. SIMVASTATIN [Concomitant]
  10. NITROGLYCERIN (GLYCERYL TRINITRATE) TRANSDERMAL PATCH [Concomitant]
  11. FUROSEMIDE (FUROSEMIDE) INJECTION [Concomitant]
  12. CIPROFLOXACIN (CIPROFLOXACIN) INJECTION [Concomitant]
  13. NYSTATIN (NYSTATIN) ORAL LIQUID [Concomitant]
  14. ZOPICLONE (ZOPICLONE) UNKNOWN [Concomitant]
  15. ACETAMINOPHEN [Concomitant]
  16. SALIVA SUBSTITUTE (CARMELLOSE SODIUM, SORBINICATE) UNKNOWN [Concomitant]

REACTIONS (11)
  - DRUG TOXICITY [None]
  - FUNGAL INFECTION [None]
  - GENERAL PHYSICAL HEALTH DETERIORATION [None]
  - HYPERGLYCAEMIA [None]
  - OEDEMA PERIPHERAL [None]
  - OPPORTUNISTIC INFECTION [None]
  - PNEUMOCYSTIS JIROVECI INFECTION [None]
  - PNEUMONIA ASPIRATION [None]
  - PNEUMONITIS [None]
  - PULMONARY ALVEOLAR HAEMORRHAGE [None]
  - PULMONARY OEDEMA [None]
